FAERS Safety Report 4576115-4 (Version None)
Quarter: 2005Q1

REPORT INFORMATION
  Report Type: 
  Country: None (occurrence: None)
  Receive Date: 20050201
  Receipt Date: 20050201
  Transmission Date: 20050727
  Serious: Yes (Other)
  Sender: FDA-Public Use
  Company Number: None

PATIENT
  Age: 51 Year
  Sex: Female
  Weight: 59.8748 kg

DRUGS (1)
  1. KETEK [Suspect]
     Dates: start: 20050127, end: 20050129

REACTIONS (2)
  - DIZZINESS [None]
  - VISION BLURRED [None]
